FAERS Safety Report 7111899-2 (Version None)
Quarter: 2010Q4

REPORT INFORMATION
  Report Type: 
  Country: None (occurrence: None)
  Receive Date: 20101119
  Receipt Date: 20101110
  Transmission Date: 20110411
  Serious: No
  Sender: FDA-Public Use
  Company Number: US-BIOGENIDEC-2010BI039939

PATIENT
  Age: 56 Year
  Sex: Female

DRUGS (2)
  1. TYSABRI [Suspect]
     Indication: MULTIPLE SCLEROSIS
     Route: 042
     Dates: start: 20070615, end: 20100119
  2. TYSABRI [Suspect]
     Route: 042
     Dates: start: 20101029

REACTIONS (3)
  - MOBILITY DECREASED [None]
  - MUSCULOSKELETAL PAIN [None]
  - VERTIGO [None]
